FAERS Safety Report 10187248 (Version 2)
Quarter: 2014Q2

REPORT INFORMATION
  Report Type: Report from Study
  Country: HK (occurrence: HK)
  Receive Date: 20140522
  Receipt Date: 20140528
  Transmission Date: 20141212
  Serious: Yes (Other)
  Sender: FDA-Public Use
  Company Number: PHHY2014HK057498

PATIENT
  Age: 70 Year
  Sex: Female

DRUGS (2)
  1. LDK378 [Suspect]
     Indication: NON-SMALL CELL LUNG CANCER
     Dosage: 750 MG, DAILY
     Route: 048
     Dates: start: 20140505
  2. ANTIEMETICS [Concomitant]
     Indication: PROPHYLAXIS OF NAUSEA AND VOMITING
     Dosage: UNK UKN, UNK
     Route: 048

REACTIONS (2)
  - Stomatitis [Recovered/Resolved]
  - Vomiting [Not Recovered/Not Resolved]
